FAERS Safety Report 12164073 (Version 1)
Quarter: 2016Q1

REPORT INFORMATION
  Report Type: Spontaneous
  Country: US (occurrence: US)
  Receive Date: 20160309
  Receipt Date: 20160309
  Transmission Date: 20160526
  Serious: No
  Sender: FDA-Public Use
  Company Number: US-GLAXOSMITHKLINE-US2016GSK032144

PATIENT
  Age: 69 Year
  Sex: Female
  Weight: 62.59 kg

DRUGS (2)
  1. VALTREX [Suspect]
     Active Substance: VALACYCLOVIR HYDROCHLORIDE
     Indication: PRODUCT USED FOR UNKNOWN INDICATION
  2. IBRANCE [Suspect]
     Active Substance: PALBOCICLIB
     Indication: BREAST CANCER
     Dosage: 125 MG, CYC
     Route: 048
     Dates: start: 20150724

REACTIONS (6)
  - Oral herpes [Recovering/Resolving]
  - Sinusitis [Unknown]
  - Fatigue [Unknown]
  - Swelling face [Unknown]
  - Blood glucose decreased [Unknown]
  - Skin haemorrhage [Unknown]
